FAERS Safety Report 5661131-1 (Version None)
Quarter: 2008Q1

REPORT INFORMATION
  Report Type: 
  Country: None (occurrence: None)
  Receive Date: 20080306
  Receipt Date: 20080226
  Transmission Date: 20080703
  Serious: Yes (Other)
  Sender: FDA-Public Use
  Company Number: CHPA2008US03678

PATIENT
  Age: 64 Year
  Sex: Female

DRUGS (2)
  1. THERAFLU DAYTIME SEVERE COLD NO PSE (NCH)(PARACETAMOL, PHENYLEPHRINE) [Suspect]
     Indication: INFLUENZA
     Dosage: 1DF, ONCE/SINGLE, ORAL
     Route: 048
     Dates: start: 20080225
  2. THERAFLU DAYTIME SEVERE COLD NO PSE (NCH)(PARACETAMOL, PHENYLEPHRINE) [Suspect]
     Indication: INFLUENZA
     Dosage: 1DF, ONCE/SINGLE, ORAL
     Route: 048
     Dates: start: 20080226

REACTIONS (1)
  - BLOOD GLUCOSE INCREASED [None]
